FAERS Safety Report 11033963 (Version 2)
Quarter: 2015Q2

REPORT INFORMATION
  Report Type: Spontaneous
  Country: US (occurrence: US)
  Receive Date: 20150415
  Receipt Date: 20150525
  Transmission Date: 20150821
  Serious: No
  Sender: FDA-Public Use
  Company Number: US-JNJFOC-20140215128

PATIENT
  Age: 78 Year
  Sex: Male
  Weight: 65.77 kg

DRUGS (4)
  1. PROPAFENONE. [Concomitant]
     Active Substance: PROPAFENONE
     Indication: ATRIAL FIBRILLATION
     Route: 048
     Dates: start: 2013
  2. FLECAINIDE [Concomitant]
     Active Substance: FLECAINIDE
     Indication: ATRIAL FIBRILLATION
     Route: 048
     Dates: start: 2012, end: 2013
  3. XARELTO [Suspect]
     Active Substance: RIVAROXABAN
     Indication: ATRIAL FIBRILLATION
     Route: 048
  4. XARELTO [Suspect]
     Active Substance: RIVAROXABAN
     Indication: CEREBROVASCULAR ACCIDENT PROPHYLAXIS
     Route: 048

REACTIONS (2)
  - Sinusitis [Not Recovered/Not Resolved]
  - Nasopharyngitis [Not Recovered/Not Resolved]

NARRATIVE: CASE EVENT DATE: 201402
